FAERS Safety Report 21158065 (Version 3)
Quarter: 2022Q3

REPORT INFORMATION
  Report Type: Report from Study
  Country: DE (occurrence: DE)
  Receive Date: 20220801
  Receipt Date: 20220908
  Transmission Date: 20221026
  Serious: Yes (Hospitalization)
  Sender: FDA-Public Use
  Company Number: DE-NOVARTISPH-NVSC2022DE168204

PATIENT
  Sex: Female

DRUGS (9)
  1. UNSPECIFIED INGREDIENT [Suspect]
     Active Substance: UNSPECIFIED INGREDIENT
     Indication: Product used for unknown indication
     Dosage: UNK
     Route: 065
  2. COSENTYX [Suspect]
     Active Substance: SECUKINUMAB
     Indication: Axial spondyloarthritis
     Dosage: 150 MG
     Route: 065
     Dates: start: 20171102, end: 20171213
  3. IBUPROFEN [Suspect]
     Active Substance: IBUPROFEN
     Indication: Axial spondyloarthritis
     Dosage: 400 MG
     Route: 065
     Dates: start: 20120101, end: 20171213
  4. IBUPROFEN [Suspect]
     Active Substance: IBUPROFEN
     Dosage: 300 MG
     Route: 065
     Dates: start: 20120101, end: 20180302
  5. SULFASALAZINE [Suspect]
     Active Substance: SULFASALAZINE
     Indication: Axial spondyloarthritis
     Dosage: 1500 MG
     Route: 065
     Dates: start: 20171227
  6. SULFASALAZINE [Suspect]
     Active Substance: SULFASALAZINE
     Dosage: 2000 MG, QD
     Route: 065
     Dates: start: 20171227
  7. AZATHIOPRINE [Suspect]
     Active Substance: AZATHIOPRINE
     Indication: Axial spondyloarthritis
     Dosage: 200 MG
     Route: 065
     Dates: start: 20170410
  8. HUMIRA [Suspect]
     Active Substance: ADALIMUMAB
     Indication: Axial spondyloarthritis
     Dosage: 40 MG
     Route: 065
     Dates: start: 20180320, end: 20190412
  9. HUMIRA [Suspect]
     Active Substance: ADALIMUMAB
     Dosage: 40 MG
     Route: 065
     Dates: start: 20190426

REACTIONS (2)
  - Perichondritis [Recovered/Resolved]
  - Product use issue [Unknown]

NARRATIVE: CASE EVENT DATE: 20210206
